FAERS Safety Report 11588576 (Version 1)
Quarter: 2015Q4

REPORT INFORMATION
  Report Type: Spontaneous
  Country: FR (occurrence: FR)
  Receive Date: 20151002
  Receipt Date: 20151002
  Transmission Date: 20160304
  Serious: Yes (Death)
  Sender: FDA-Public Use
  Company Number: PHHY2015FR118569

PATIENT
  Age: 67 Year
  Sex: Female
  Weight: 38 kg

DRUGS (10)
  1. LEVOTHYROX [Concomitant]
     Active Substance: LEVOTHYROXINE
     Indication: HYPOTHYROIDISM
     Dosage: UNK
     Route: 065
     Dates: start: 201411
  2. BICARBONATE [Concomitant]
     Active Substance: BICARBONATE ION
     Indication: PROPHYLAXIS
     Dosage: UNK
     Route: 065
     Dates: start: 201410
  3. EFFERALGAN CODEINE [Concomitant]
     Active Substance: ACETAMINOPHEN\CODEINE PHOSPHATE
     Indication: PAIN
     Dosage: UNK
     Route: 065
     Dates: start: 201506
  4. FUNGIZONE [Concomitant]
     Active Substance: AMPHOTERICIN B
     Indication: MUCOSAL INFLAMMATION
     Dosage: UNK
     Route: 065
     Dates: start: 201411
  5. AUGMENTIN [Concomitant]
     Active Substance: AMOXICILLIN\CLAVULANATE POTASSIUM
     Indication: ERYSIPELAS
     Dosage: UNK
     Route: 065
     Dates: start: 201505, end: 2015
  6. DEDROGYL [Concomitant]
     Active Substance: CALCIFEDIOL
     Indication: OSTEOMALACIA
     Dosage: UNK
     Route: 065
     Dates: start: 201506
  7. UVEDOSE [Concomitant]
     Active Substance: CHOLECALCIFEROL
     Indication: OSTEOMALACIA
     Dosage: UNK
     Route: 065
     Dates: start: 201506
  8. AFINITOR [Suspect]
     Active Substance: EVEROLIMUS
     Indication: METASTATIC RENAL CELL CARCINOMA
     Dosage: 10 MG, DAILY
     Route: 065
     Dates: start: 201501, end: 201508
  9. NEORECORMON [Concomitant]
     Active Substance: ERYTHROPOIETIN
     Indication: ANAEMIA
     Dosage: UNK
     Route: 065
     Dates: start: 201412
  10. PROLIA [Concomitant]
     Active Substance: DENOSUMAB
     Indication: OSTEOMALACIA
     Dosage: UNK
     Route: 065
     Dates: start: 201506

REACTIONS (3)
  - Respiratory distress [Fatal]
  - Malignant neoplasm progression [Fatal]
  - Pyrexia [Fatal]

NARRATIVE: CASE EVENT DATE: 20150817
